FAERS Safety Report 6010124-3 (Version None)
Quarter: 2008Q4

REPORT INFORMATION
  Report Type: 
  Country: None (occurrence: None)
  Receive Date: 20081218
  Receipt Date: 20081211
  Transmission Date: 20090506
  Serious: Yes (Death, Hospitalization, Other)
  Sender: FDA-Public Use
  Company Number: US-CELGENEUS-163-50794-08110678

PATIENT
  Sex: Female
  Weight: 56.7 kg

DRUGS (13)
  1. VIDAZA [Suspect]
     Indication: OVARIAN CANCER
     Route: 058
     Dates: start: 20081006, end: 20081010
  2. VALPROIC ACID [Suspect]
     Indication: OVARIAN CANCER
     Route: 048
     Dates: start: 20081010, end: 20081016
  3. VALPROIC ACID [Suspect]
     Route: 048
  4. CARBOPLATIN [Suspect]
     Indication: OVARIAN CANCER
     Dosage: AUC 2.5
     Route: 051
     Dates: start: 20080101, end: 20080101
  5. CARAFATE [Concomitant]
     Indication: DRUG USE FOR UNKNOWN INDICATION
     Route: 065
  6. COLACE [Concomitant]
     Indication: DRUG USE FOR UNKNOWN INDICATION
     Route: 065
  7. DULCOLAX [Concomitant]
     Indication: DRUG USE FOR UNKNOWN INDICATION
     Route: 065
  8. HYDROCORTISONE [Concomitant]
     Indication: DRUG USE FOR UNKNOWN INDICATION
     Route: 061
  9. LOVENOX [Concomitant]
     Indication: PULMONARY EMBOLISM
     Route: 065
  10. REGLAN [Concomitant]
     Indication: DRUG USE FOR UNKNOWN INDICATION
     Route: 065
  11. FLAGYL [Concomitant]
     Indication: DRUG USE FOR UNKNOWN INDICATION
     Route: 061
  12. PANTOPRAZOLE SODIUM [Concomitant]
     Indication: DRUG USE FOR UNKNOWN INDICATION
     Route: 065
  13. SERTRALINE [Concomitant]
     Indication: DRUG USE FOR UNKNOWN INDICATION
     Route: 065

REACTIONS (3)
  - ABDOMINAL SEPSIS [None]
  - NEUTROPENIA [None]
  - PULMONARY EMBOLISM [None]
